FAERS Safety Report 8318006-9 (Version None)
Quarter: 2012Q2

REPORT INFORMATION
  Report Type: 
  Country: None (occurrence: None)
  Receive Date: 20120427
  Receipt Date: 20120423
  Transmission Date: 20120825
  Serious: No
  Sender: FDA-Public Use
  Company Number: US-PFIZER INC-2012101002

PATIENT
  Sex: Female
  Weight: 65.76 kg

DRUGS (1)
  1. SUTENT [Suspect]
     Indication: RENAL CANCER
     Dosage: 50 MG, DAILY (21 DAYS ON AND 2 WEEKS OFF
     Route: 048
     Dates: start: 20120301

REACTIONS (1)
  - FATIGUE [None]
